FAERS Safety Report 10285130 (Version 2)
Quarter: 2014Q3

REPORT INFORMATION
  Report Type: Spontaneous
  Country: DE (occurrence: DE)
  Receive Date: 20140708
  Receipt Date: 20140708
  Transmission Date: 20150326
  Serious: Yes (Other)
  Sender: FDA-Public Use
  Company Number: CHPA2014DE007797

PATIENT
  Age: 80 Year
  Sex: Female

DRUGS (6)
  1. LOPERAMID [Concomitant]
     Active Substance: LOPERAMIDE
  2. SCOPODERM TTS [Suspect]
     Active Substance: SCOPOLAMINE
     Indication: OFF LABEL USE
  3. SCOPODERM TTS [Suspect]
     Active Substance: SCOPOLAMINE
     Indication: SALIVARY HYPERSECRETION
     Dosage: 1 DF, Q72H
     Route: 062
     Dates: start: 201405, end: 201406
  4. CALCIUM [Concomitant]
     Active Substance: CALCIUM
     Dosage: 1 DF, QD
  5. ACETYLSALICYLIC ACID [Concomitant]
     Active Substance: ASPIRIN
  6. ENALAPRIL [Concomitant]
     Active Substance: ENALAPRIL
     Dosage: 1 DF, QD

REACTIONS (5)
  - Cough [Recovered/Resolved]
  - Drug ineffective for unapproved indication [Unknown]
  - Choking [Recovering/Resolving]
  - Lung disorder [Recovering/Resolving]
  - Condition aggravated [Recovering/Resolving]

NARRATIVE: CASE EVENT DATE: 201405
